FAERS Safety Report 6816276-7 (Version None)
Quarter: 2010Q2

REPORT INFORMATION
  Report Type: 
  Country: None (occurrence: None)
  Receive Date: 20100630
  Receipt Date: 20100621
  Transmission Date: 20101027
  Serious: Yes (Disabling)
  Sender: FDA-Public Use
  Company Number: 2010MA000063

PATIENT
  Sex: Female

DRUGS (3)
  1. PHENTERMINE HYDROCHLORIDE TABLETS, USP 37.5 MG  (AMIDE) [Suspect]
     Dosage: 37.5 MG; QD; PO
     Route: 048
     Dates: start: 20070821, end: 20081001
  2. CON MEDS [Concomitant]
  3. PREV MEDS [Concomitant]

REACTIONS (11)
  - ACTIVITIES OF DAILY LIVING IMPAIRED [None]
  - ANEURYSM [None]
  - ECONOMIC PROBLEM [None]
  - EMOTIONAL DISTRESS [None]
  - INJURY [None]
  - LOSS OF EMPLOYMENT [None]
  - MENTAL DISORDER [None]
  - NERVOUS SYSTEM DISORDER [None]
  - PAIN [None]
  - SHOCK [None]
  - SPLEEN DISORDER [None]
